FAERS Safety Report 17706853 (Version 1)
Quarter: 2020Q2

REPORT INFORMATION
  Report Type: Spontaneous
  Country: IT (occurrence: IT)
  Receive Date: 20200424
  Receipt Date: 20200424
  Transmission Date: 20200714
  Serious: Yes (Hospitalization)
  Sender: FDA-Public Use
  Company Number: IT-BAYER-2020-062866

PATIENT
  Age: 52 Year
  Sex: Male
  Weight: 100 kg

DRUGS (1)
  1. NEXAVAR [Suspect]
     Active Substance: SORAFENIB
     Indication: HEPATOCELLULAR CARCINOMA
     Dosage: 800 MG, QD
     Route: 048
     Dates: start: 20200111, end: 20200128

REACTIONS (4)
  - Oedema [Recovering/Resolving]
  - Skin exfoliation [Recovering/Resolving]
  - Fluid retention [Recovering/Resolving]
  - Capillary permeability increased [Recovering/Resolving]

NARRATIVE: CASE EVENT DATE: 20200111
